FAERS Safety Report 10220495 (Version 1)
Quarter: 2014Q2

REPORT INFORMATION
  Report Type: Spontaneous
  Country: GB (occurrence: GB)
  Receive Date: 20140606
  Receipt Date: 20140606
  Transmission Date: 20141212
  Serious: Yes (Other)
  Sender: FDA-Public Use
  Company Number: GB-MERCK-1406GBR002591

PATIENT
  Sex: 0

DRUGS (2)
  1. RIBAVIRIN [Suspect]
     Indication: CHRONIC HEPATITIS C
     Dosage: WEIGH BASED, 1000 MG/D{75 KG OR 1200 MG/D }75 KG
  2. PEGINTERFERON ALFA-2A [Suspect]
     Indication: CHRONIC HEPATITIS C
     Dosage: 180 MICROGRAM, QW

REACTIONS (2)
  - Sepsis [Unknown]
  - Neutropenia [Unknown]
